FAERS Safety Report 8065120-1 (Version None)
Quarter: 2012Q1

REPORT INFORMATION
  Report Type: 
  Country: None (occurrence: None)
  Receive Date: 20120117
  Receipt Date: 20120104
  Transmission Date: 20120608
  Serious: Yes (Hospitalization)
  Sender: FDA-Public Use
  Company Number: 216377

PATIENT
  Age: 56 Year
  Sex: Female
  Weight: 142.7 kg

DRUGS (4)
  1. REMICADE [Suspect]
     Indication: PSORIASIS
     Dosage: INTRAVENOUS
     Route: 042
     Dates: start: 20090101, end: 20110201
  2. ENBREL [Suspect]
     Indication: PRODUCT USED FOR UNKNOWN INDICATION
     Dates: start: 20110401
  3. CORTICOSTEROIDS NOS (CORTICOSTEROID NOS) [Suspect]
     Indication: PRODUCT USED FOR UNKNOWN INDICATION
  4. DAIVOBET OINTMENT (DAIVOBET /01643401/) [Suspect]
     Indication: PRODUCT USED FOR UNKNOWN INDICATION
     Dosage: TOPICAL
     Route: 061

REACTIONS (1)
  - CELLULITIS [None]
